FAERS Safety Report 21228965 (Version 1)
Quarter: 2022Q3

REPORT INFORMATION
  Report Type: Spontaneous
  Country: US (occurrence: None)
  Receive Date: 20220818
  Receipt Date: 20220818
  Transmission Date: 20221026
  Serious: Yes (Other)
  Sender: FDA-Public Use
  Company Number: None

PATIENT
  Sex: 0

DRUGS (1)
  1. PAXLOVID [Suspect]
     Active Substance: NIRMATRELVIR\RITONAVIR
     Dosage: 3 TOT - TOTAL

REACTIONS (3)
  - Product commingling [None]
  - Product packaging issue [None]
  - Product quality issue [None]

NARRATIVE: CASE EVENT DATE: 20220816
